FAERS Safety Report 21167736 (Version 1)
Quarter: 2022Q3

REPORT INFORMATION
  Report Type: Spontaneous
  Country: US (occurrence: US)
  Receive Date: 20220803
  Receipt Date: 20220803
  Transmission Date: 20221026
  Serious: Yes (Hospitalization)
  Sender: FDA-Public Use
  Company Number: US-MYLANLABS-2022M1083050

PATIENT
  Age: 13 Month
  Sex: Male

DRUGS (2)
  1. CARBOPLATIN [Suspect]
     Active Substance: CARBOPLATIN
     Indication: Ganglioglioma
     Dosage: 175 MILLIGRAM/SQ. METER
     Route: 065
  2. VINCRISTINE [Suspect]
     Active Substance: VINCRISTINE
     Indication: Ganglioglioma
     Dosage: 1.5 MILLIGRAM/SQ. METER
     Route: 065

REACTIONS (2)
  - Ascites [Recovered/Resolved]
  - Off label use [Unknown]
